FAERS Safety Report 8835197 (Version 1)
Quarter: 2012Q4

REPORT INFORMATION
  Report Type: Report from Study
  Country: IE (occurrence: IE)
  Receive Date: 20121011
  Receipt Date: 20121011
  Transmission Date: 20130627
  Serious: Yes (Disabling)
  Sender: FDA-Public Use
  Company Number: IE-ROCHE-1143836

PATIENT
  Age: 73 Year
  Sex: Female

DRUGS (2)
  1. RANIBIZUMAB [Suspect]
     Indication: PRODUCT USED FOR UNKNOWN INDICATION
     Route: 050
     Dates: start: 20111007
  2. RANIBIZUMAB [Suspect]
     Route: 050
     Dates: start: 20120822

REACTIONS (1)
  - Vitreous haemorrhage [Recovered/Resolved]
